FAERS Safety Report 6518481-6 (Version None)
Quarter: 2009Q4

REPORT INFORMATION
  Report Type: 
  Country: None (occurrence: None)
  Receive Date: 20091226
  Receipt Date: 20091215
  Transmission Date: 20100525
  Serious: Yes (Other)
  Sender: FDA-Public Use
  Company Number: JP-JNJFOC-20091206192

PATIENT
  Sex: Female

DRUGS (3)
  1. CRAVIT [Suspect]
     Indication: APPENDICITIS
     Route: 048
  2. EBASTINE [Concomitant]
     Indication: URTICARIA
     Route: 048
  3. ATARAX [Concomitant]
     Indication: URTICARIA
     Route: 048

REACTIONS (4)
  - DYSPNOEA [None]
  - FEELING HOT [None]
  - FLUSHING [None]
  - URTICARIA [None]
